FAERS Safety Report 10774947 (Version 1)
Quarter: 2015Q1

REPORT INFORMATION
  Report Type: Report from Study
  Country: CA (occurrence: CA)
  Receive Date: 20150209
  Receipt Date: 20150209
  Transmission Date: 20150721
  Serious: Yes (Other)
  Sender: FDA-Public Use
  Company Number: CA-JNJFOC-20150117852

PATIENT
  Age: 54 Year
  Sex: Female

DRUGS (2)
  1. CLOXACILLIN [Concomitant]
     Active Substance: CLOXACILLIN
     Route: 065
     Dates: start: 20141230
  2. STELARA [Suspect]
     Active Substance: USTEKINUMAB
     Indication: PSORIATIC ARTHROPATHY
     Dosage: 6 WEEKS
     Route: 058
     Dates: start: 20140618

REACTIONS (2)
  - Shoulder arthroplasty [Unknown]
  - Post procedural infection [Unknown]

NARRATIVE: CASE EVENT DATE: 20141218
